FAERS Safety Report 7090736-9 (Version None)
Quarter: 2010Q4

REPORT INFORMATION
  Report Type: 
  Country: None (occurrence: None)
  Receive Date: 20101109
  Receipt Date: 20101026
  Transmission Date: 20110411
  Serious: Yes (Other)
  Sender: FDA-Public Use
  Company Number: PHHY2010FR72481

PATIENT
  Sex: Female

DRUGS (3)
  1. FEMARA [Suspect]
     Dosage: 2.5 MG, QD
     Dates: start: 20020101
  2. CLASTOBAN [Concomitant]
     Dosage: 1600 MG, QD
     Dates: start: 20020101, end: 20100920
  3. XANAX [Concomitant]

REACTIONS (3)
  - BONE LESION [None]
  - OSTEONECROSIS OF JAW [None]
  - PURULENT DISCHARGE [None]
